FAERS Safety Report 6436707-4 (Version None)
Quarter: 2009Q4

REPORT INFORMATION
  Report Type: 
  Country: None (occurrence: None)
  Receive Date: 20091110
  Receipt Date: 20091110
  Transmission Date: 20100525
  Serious: No
  Sender: FDA-Public Use
  Company Number: None

PATIENT
  Age: 65 Year
  Sex: Female
  Weight: 50.3493 kg

DRUGS (1)
  1. KAPIDEX [Suspect]
     Indication: GASTROOESOPHAGEAL REFLUX DISEASE
     Dosage: 60 MG DAILY PO
     Route: 048
     Dates: start: 20090930, end: 20091106

REACTIONS (4)
  - COUGH [None]
  - DIARRHOEA [None]
  - FLATULENCE [None]
  - PAINFUL DEFAECATION [None]
